FAERS Safety Report 16557082 (Version 1)
Quarter: 2019Q3

REPORT INFORMATION
  Report Type: Spontaneous
  Country: IN (occurrence: IN)
  Receive Date: 20190711
  Receipt Date: 20190711
  Transmission Date: 20191004
  Serious: Yes (Other)
  Sender: FDA-Public Use
  Company Number: IN-GLAXOSMITHKLINE-IN2019GSK121369

PATIENT
  Age: 51 Year
  Sex: Female

DRUGS (10)
  1. LAMIVUDINE. [Suspect]
     Active Substance: LAMIVUDINE
     Indication: ANTIRETROVIRAL THERAPY
     Dosage: UNK
  2. STREPTOMYCIN [Suspect]
     Active Substance: STREPTOMYCIN SULFATE
     Indication: TUBERCULOSIS
     Dosage: UNK
  3. STAVUDINE. [Suspect]
     Active Substance: STAVUDINE
     Indication: ANTIRETROVIRAL THERAPY
     Dosage: UNK
  4. PYRAZINAMIDE. [Suspect]
     Active Substance: PYRAZINAMIDE
     Indication: TUBERCULOSIS
     Dosage: UNK
     Dates: start: 20180508
  5. EFAVIRENZ. [Suspect]
     Active Substance: EFAVIRENZ
     Indication: ANTIRETROVIRAL THERAPY
     Dosage: UNK
     Dates: start: 20180508
  6. RIFAMPICINE [Suspect]
     Active Substance: RIFAMPIN
     Indication: TUBERCULOSIS
     Dosage: UNK
     Dates: start: 20180508
  7. OFLOXACIN. [Suspect]
     Active Substance: OFLOXACIN
     Indication: TUBERCULOSIS
     Dosage: UNK
  8. ETHAMBUTOL [Suspect]
     Active Substance: ETHAMBUTOL HYDROCHLORIDE
     Indication: TUBERCULOSIS
     Dosage: UNK
     Dates: start: 20180508
  9. NEVIRAPINE. [Suspect]
     Active Substance: NEVIRAPINE
     Indication: ANTIRETROVIRAL THERAPY
     Dosage: UNK
     Dates: end: 20180508
  10. ISONIAZID. [Suspect]
     Active Substance: ISONIAZID
     Indication: TUBERCULOSIS
     Dosage: UNK
     Dates: start: 20180508

REACTIONS (25)
  - Pruritus generalised [Recovered/Resolved]
  - Alanine aminotransferase increased [Recovered/Resolved]
  - Drug-induced liver injury [Recovered/Resolved]
  - Focal dyscognitive seizures [Recovered/Resolved]
  - Swelling [Unknown]
  - Lymphadenopathy [Recovered/Resolved]
  - Blood bilirubin increased [Recovered/Resolved]
  - Aspartate aminotransferase increased [Recovered/Resolved]
  - Portal vein occlusion [Recovered/Resolved]
  - Immune reconstitution inflammatory syndrome associated tuberculosis [Recovered/Resolved]
  - General physical health deterioration [Recovered/Resolved]
  - Night sweats [Recovered/Resolved]
  - Pulmonary tuberculosis [Recovered/Resolved]
  - Partial seizures [Recovered/Resolved]
  - Tuberculoma of central nervous system [Recovered/Resolved]
  - Central nervous system lesion [Recovered/Resolved]
  - Disseminated tuberculosis [Recovered/Resolved]
  - Cough [Recovered/Resolved]
  - Pyrexia [Recovered/Resolved]
  - Abdominal pain [Recovered/Resolved]
  - Jaundice [Recovered/Resolved]
  - Muscle abscess [Unknown]
  - Blood HIV RNA increased [Recovered/Resolved]
  - Central nervous system immune reconstitution inflammatory response [Recovered/Resolved]
  - Weight decreased [Unknown]
